FAERS Safety Report 6599200-4 (Version None)
Quarter: 2010Q1

REPORT INFORMATION
  Report Type: 
  Country: None (occurrence: None)
  Receive Date: 20100224
  Receipt Date: 20100218
  Transmission Date: 20100710
  Serious: Yes (Hospitalization)
  Sender: FDA-Public Use
  Company Number: DE-WYE-G05588310

PATIENT
  Age: 68 Year
  Sex: Female

DRUGS (6)
  1. TREVILOR RETARD [Suspect]
     Indication: DEPRESSION
     Route: 048
     Dates: start: 20090505, end: 20090511
  2. TREVILOR RETARD [Suspect]
     Route: 048
     Dates: start: 20090512, end: 20090513
  3. TAVOR [Concomitant]
     Route: 048
     Dates: start: 20090425, end: 20090601
  4. TAVOR [Concomitant]
     Route: 048
     Dates: start: 20090602, end: 20090707
  5. TAVOR [Concomitant]
     Dosage: TAPERED
     Route: 048
     Dates: start: 20090708, end: 20090101
  6. LISKANTIN [Concomitant]
     Dosage: 500 MG/D FROM UNKN DATE, 625 MG/D FROM 27-APR-2009, 750 MG/D FROM 25-MAY-2009, CONTINUES
     Route: 048

REACTIONS (3)
  - BLOOD PRESSURE INCREASED [None]
  - CONVULSION [None]
  - CONVULSIVE THRESHOLD LOWERED [None]
